FAERS Safety Report 9905357 (Version 1)
Quarter: 2013Q2

REPORT INFORMATION
  Report Type: Spontaneous
  Country: US (occurrence: None)
  Receive Date: 20130305
  Receipt Date: 20130305
  Transmission Date: 20140414
  Serious: Yes (Hospitalization)
  Sender: FDA-Public Use
  Company Number: 163-21880-12041568

PATIENT
  Age: 68 Year
  Sex: Female

DRUGS (14)
  1. REVLIMID (LENALIDOMIDE) (25 MILLIGRAM, CAPSULES) [Suspect]
     Dosage: 25 MG, QD X21 DAYS, PO
     Route: 048
     Dates: start: 201202
  2. CALCIUM + (OS-CAL) (UNKNOWN) [Concomitant]
  3. DOK PLUS (PERI-COLACE) [Concomitant]
  4. FISH OIL (FISH OIL) [Concomitant]
  5. ASPIRIN (ACETYLSALICYLIC ACID) [Concomitant]
  6. HYZAAR (HYZAAR) [Concomitant]
  7. MAGNESIUM (MAGNESIUM) [Concomitant]
  8. MELATONIN (MAGNESIUM) [Concomitant]
  9. MULTIVITAMIN (MULTIVITAMINS) [Concomitant]
  10. OXYCONTIN (OXYCODONE HYDROCHLORIDE) [Concomitant]
  11. REQUIP (ROPINIROLE HYDROCHLORIDE) [Concomitant]
  12. POTASSIUM (POTASSIUM) [Concomitant]
  13. VITAMIN D (ERGOCALIFEROL) [Concomitant]
  14. ZOMETA (ZOLEDRONIC ACID) [Concomitant]

REACTIONS (1)
  - Pulmonary embolism [None]
